FAERS Safety Report 9753646 (Version 1)
Quarter: 2013Q4

REPORT INFORMATION
  Report Type: Spontaneous
  Country: GB (occurrence: GB)
  Receive Date: 20131213
  Receipt Date: 20131213
  Transmission Date: 20140711
  Serious: Yes (Life-Threatening)
  Sender: FDA-Public Use
  Company Number: PHFR2013GB007121

PATIENT
  Age: 50 Year
  Sex: Male

DRUGS (5)
  1. PROCHLORPERAZINE [Suspect]
     Indication: NAUSEA
     Dosage: 5 MG TID
     Route: 048
     Dates: start: 20131111, end: 20131115
  2. CARBAMAZEPINE [Suspect]
  3. HALOPERIDOL [Concomitant]
     Route: 048
  4. GAVISCON [Concomitant]
     Route: 048
  5. DOMPERIDONE [Concomitant]
     Dates: end: 2013

REACTIONS (2)
  - Tonic convulsion [Recovered/Resolved]
  - Drug interaction [Unknown]
